FAERS Safety Report 6182793-9 (Version None)
Quarter: 2009Q2

REPORT INFORMATION
  Report Type: 
  Country: None (occurrence: None)
  Receive Date: 20090505
  Receipt Date: 20090422
  Transmission Date: 20091009
  Serious: Yes (Hospitalization)
  Sender: FDA-Public Use
  Company Number: 230010M08NLD

PATIENT
  Age: 11 Year
  Sex: Male
  Weight: 41 kg

DRUGS (3)
  1. REBIF [Suspect]
     Indication: OFF LABEL USE
     Dosage: 3 IN 1 WEEKS, SUBCUTANEOUS
     Route: 058
     Dates: start: 20081020, end: 20081030
  2. OMEPRAZOLE [Concomitant]
  3. MAGNESIUM OXIDE RP (MAGNESIUM OXIDE) [Concomitant]

REACTIONS (6)
  - ANAEMIA [None]
  - CHILLS [None]
  - INFECTION [None]
  - LEUKOPENIA [None]
  - PYREXIA [None]
  - THROMBOCYTOPENIA [None]
